FAERS Safety Report 9641187 (Version 2)
Quarter: 2013Q4

REPORT INFORMATION
  Report Type: Spontaneous
  Country: PE (occurrence: PE)
  Receive Date: 20131023
  Receipt Date: 20131023
  Transmission Date: 20140711
  Serious: Yes (Other)
  Sender: FDA-Public Use
  Company Number: PE-PFIZER INC-2013272585

PATIENT
  Age: 86 Year
  Sex: Female

DRUGS (4)
  1. LIPITOR [Suspect]
     Indication: HYPERCHOLESTEROLAEMIA
     Dosage: 40 MG, UNK
     Route: 048
     Dates: start: 2008, end: 201309
  2. NORVASC [Concomitant]
     Indication: HYPERTENSION
     Dosage: 5 MG, UNK
     Route: 048
     Dates: start: 2008
  3. ARAVA [Concomitant]
     Indication: RHEUMATIC DISORDER
     Dosage: UNK
     Route: 048
     Dates: start: 2003, end: 20131013
  4. DIGOXINE [Concomitant]
     Indication: CARDIAC DISORDER
     Dosage: UNK
     Route: 048
     Dates: start: 2008

REACTIONS (2)
  - Blood urine present [Not Recovered/Not Resolved]
  - Abdominal discomfort [Not Recovered/Not Resolved]
